FAERS Safety Report 24395930 (Version 2)
Quarter: 2024Q4

REPORT INFORMATION
  Report Type: Spontaneous
  Country: US (occurrence: US)
  Receive Date: 20241004
  Receipt Date: 20241009
  Transmission Date: 20250115
  Serious: Yes (Life-Threatening, Hospitalization, Other)
  Sender: DR REDDYS
  Company Number: None

PATIENT
  Age: 64 Year
  Sex: Male

DRUGS (2)
  1. IBUPROFEN [Suspect]
     Active Substance: IBUPROFEN
     Indication: Headache
     Dosage: LONGSTANDING USE FOR 10 YEARS
  2. IBUPROFEN [Suspect]
     Active Substance: IBUPROFEN
     Indication: Rheumatoid arthritis
     Dosage: INCREASED DOSE FEW WEEKS BEFORE HOSPITALIZATION

REACTIONS (3)
  - Meningitis aseptic [Recovered/Resolved]
  - Encephalitis [Recovered/Resolved]
  - Intentional product use issue [Unknown]
